FAERS Safety Report 9632011 (Version 3)
Quarter: 2013Q4

REPORT INFORMATION
  Report Type: Spontaneous
  Country: None (occurrence: None)
  Receive Date: 20131016
  Receipt Date: 20131213
  Transmission Date: 20140711
  Serious: Yes (Other)
  Sender: FDA-Public Use
  Company Number: US-2013-2919

PATIENT
  Sex: 0

DRUGS (3)
  1. NAVELBINE [Suspect]
     Indication: NON-SMALL CELL LUNG CANCER
     Dosage: 15 OR 24 MG/M2, DAYS 1 AND 8 OR DAYS 8 AND 29
  2. GEMCITABINE (GEMCITABINE) [Suspect]
     Indication: NON-SMALL CELL LUNG CANCER
     Dosage: 200 OR 1000MG/M2 MG/M2, DAY  CYCLICAL (1/21)
  3. CISPLATIN (CISPLATIN) [Suspect]
     Indication: NON-SMALL CELL LUNG CANCER
     Dosage: 60 MG/M2, DAY 1, CYCLICAL (1/21)

REACTIONS (3)
  - Peripheral ischaemia [None]
  - Leukopenia [None]
  - Haematotoxicity [None]
